FAERS Safety Report 17791289 (Version 1)
Quarter: 2020Q2

REPORT INFORMATION
  Report Type: Spontaneous
  Country: US (occurrence: US)
  Receive Date: 20200515
  Receipt Date: 20200515
  Transmission Date: 20200714
  Serious: No
  Sender: FDA-Public Use
  Company Number: US-BAYER-2020-083450

PATIENT
  Age: 81 Year
  Sex: Female

DRUGS (2)
  1. MIRALAX [Suspect]
     Active Substance: POLYETHYLENE GLYCOL 3350
     Indication: DIVERTICULITIS
     Dosage: TAKE HALF A DOSE EVERYDAY.
     Route: 048
  2. LINZESS [Suspect]
     Active Substance: LINACLOTIDE

REACTIONS (17)
  - Off label use [Unknown]
  - Dysphagia [Unknown]
  - Dry eye [Unknown]
  - Dry skin [Unknown]
  - Dry mouth [Unknown]
  - Adverse drug reaction [Unknown]
  - Product use in unapproved indication [Unknown]
  - Dyspnoea [Recovered/Resolved]
  - Dry throat [Unknown]
  - Ear discomfort [Unknown]
  - Feeling abnormal [Unknown]
  - Lip dry [Unknown]
  - Chapped lips [Unknown]
  - Abdominal discomfort [Unknown]
  - Weight decreased [Unknown]
  - Gastrointestinal motility disorder [Unknown]
  - Flatulence [Unknown]
